FAERS Safety Report 8061640-4 (Version None)
Quarter: 2012Q1

REPORT INFORMATION
  Report Type: 
  Country: None (occurrence: None)
  Receive Date: 20120123
  Receipt Date: 20120116
  Transmission Date: 20120608
  Serious: Yes (Death, Life-Threatening, Hospitalization)
  Sender: FDA-Public Use
  Company Number: RO-BRISTOL-MYERS SQUIBB COMPANY-16259368

PATIENT
  Age: 50 Year
  Sex: Female

DRUGS (1)
  1. YERVOY [Suspect]
     Indication: MALIGNANT MELANOMA
     Dosage: 3 MG/KG, THERAPY DURATION: 90 MINUTES. DAY 22ND:2ND CYCLE 3RD CYC:12DEC11
     Route: 042
     Dates: start: 20111121

REACTIONS (3)
  - NEOPLASM MALIGNANT [None]
  - HAEMORRHAGE [None]
  - GENERAL PHYSICAL HEALTH DETERIORATION [None]
